FAERS Safety Report 4461288-4 (Version None)
Quarter: 2004Q3

REPORT INFORMATION
  Report Type: 
  Country: None (occurrence: None)
  Receive Date: 20040928
  Receipt Date: 20040923
  Transmission Date: 20050211
  Serious: Yes (Death, Other)
  Sender: FDA-Public Use
  Company Number: US-GLAXOSMITHKLINE-A0527120A

PATIENT
  Age: 30 Year
  Sex: Female

DRUGS (2)
  1. IMITREX [Suspect]
     Indication: MIGRAINE
     Route: 065
  2. MULTIPLE MEDICATIONS [Concomitant]

REACTIONS (3)
  - ANEURYSM [None]
  - CONDITION AGGRAVATED [None]
  - DEATH [None]
